APPROVED DRUG PRODUCT: ADENOSINE
Active Ingredient: ADENOSINE
Strength: 60MG/20ML (3MG/ML)
Dosage Form/Route: SOLUTION;INTRAVENOUS
Application: A202313 | Product #001 | TE Code: AP
Applicant: AVET LIFESCIENCES LTD
Approved: Sep 15, 2014 | RLD: No | RS: No | Type: RX